FAERS Safety Report 8488381-3 (Version None)
Quarter: 2012Q3

REPORT INFORMATION
  Report Type: 
  Country: None (occurrence: None)
  Receive Date: 20120705
  Receipt Date: 20120702
  Transmission Date: 20120928
  Serious: Yes (Hospitalization)
  Sender: FDA-Public Use
  Company Number: US-BAYER-2011-086881

PATIENT
  Age: 24 Year
  Sex: Female
  Weight: 77.098 kg

DRUGS (9)
  1. LUPRON [Concomitant]
  2. ALBUTEROL [Concomitant]
     Indication: ASTHMA
     Dosage: UNK
     Dates: start: 19890101
  3. ADVAIR DISKUS 100/50 [Concomitant]
  4. VICODIN [Concomitant]
  5. REGLAN [Concomitant]
  6. YASMIN [Suspect]
     Indication: ENDOMETRIOSIS
     Dosage: UNK
     Dates: start: 20030601
  7. FLOVENT [Concomitant]
     Indication: ASTHMA
     Dosage: UNK
     Dates: start: 19970101, end: 20040101
  8. SEREVENT [Concomitant]
     Indication: ASTHMA
     Dosage: UNK
     Dates: start: 19970101, end: 20040101
  9. TRAVATAN [Concomitant]
     Indication: GLAUCOMA
     Dosage: UNK
     Dates: start: 20040101

REACTIONS (11)
  - GALLBLADDER DISORDER [None]
  - DEPRESSION [None]
  - PAIN [None]
  - BILIARY DYSKINESIA [None]
  - GENERAL PHYSICAL HEALTH DETERIORATION [None]
  - PANCREATITIS [None]
  - ANXIETY [None]
  - ANHEDONIA [None]
  - ABDOMINAL PAIN [None]
  - EMOTIONAL DISTRESS [None]
  - INJURY [None]
